FAERS Safety Report 9067353 (Version 1)
Quarter: 2013Q1

REPORT INFORMATION
  Report Type: Report from Study
  Country: CN (occurrence: CN)
  Receive Date: 20130128
  Receipt Date: 20130128
  Transmission Date: 20140127
  Serious: Yes (Hospitalization)
  Sender: FDA-Public Use
  Company Number: CN-GE HEALTHCARE MEDICAL DIAGNOSTICS-VISP-NO-1110S-0416

PATIENT
  Age: 72 Year
  Sex: Male
  Weight: 70 kg

DRUGS (3)
  1. VISIPAQUE [Suspect]
     Indication: RENAL MASS
     Route: 042
     Dates: start: 20111011, end: 20111011
  2. VISIPAQUE [Suspect]
     Indication: DIAGNOSTIC PROCEDURE
  3. ACETYLSALICYLIC ACID (ASPIRIN) [Concomitant]

REACTIONS (4)
  - Cerebral infarction [Unknown]
  - Pain [Unknown]
  - Pyrexia [Unknown]
  - Pain [Unknown]
